FAERS Safety Report 19666590 (Version 6)
Quarter: 2021Q4

REPORT INFORMATION
  Report Type: Spontaneous
  Country: JP (occurrence: JP)
  Receive Date: 20210806
  Receipt Date: 20211118
  Transmission Date: 20220303
  Serious: Yes (Hospitalization, Other)
  Sender: FDA-Public Use
  Company Number: JP-AMGEN-JPNSP2021119316

PATIENT
  Age: 88 Year
  Sex: Female

DRUGS (3)
  1. EVENITY [Suspect]
     Active Substance: ROMOSOZUMAB-AQQG
     Indication: Osteoporosis
     Dosage: 210 MILLIGRAM, QMO
     Route: 058
     Dates: start: 20210427, end: 20210625
  2. AMLODIPINE BESYLATE [Concomitant]
     Active Substance: AMLODIPINE BESYLATE
     Dosage: UNK
  3. CELECOXIB [Concomitant]
     Active Substance: CELECOXIB
     Indication: Spinal compression fracture
     Dosage: 1 DOSAGE FORM, BID
     Dates: start: 20210325, end: 20210629

REACTIONS (6)
  - Urinary tract infection [Unknown]
  - Fall [Recovering/Resolving]
  - Internal haemorrhage [Unknown]
  - Peroneal nerve palsy [Not Recovered/Not Resolved]
  - Contusion [Unknown]
  - Pain [Recovering/Resolving]

NARRATIVE: CASE EVENT DATE: 20210429
